FAERS Safety Report 9166078 (Version 1)
Quarter: 2013Q1

REPORT INFORMATION
  Report Type: Spontaneous
  Country: ES (occurrence: ES)
  Receive Date: 20130315
  Receipt Date: 20130315
  Transmission Date: 20140127
  Serious: Yes (Life-Threatening)
  Sender: FDA-Public Use
  Company Number: ES-ROXANE LABORATORIES, INC.-2013-RO-00367RO

PATIENT
  Age: 18 Year
  Sex: Male

DRUGS (1)
  1. FLECAINIDE [Suspect]
     Dosage: 1800 MG

REACTIONS (4)
  - Suicide attempt [Recovered/Resolved]
  - Toxicity to various agents [Recovered/Resolved]
  - Bundle branch block right [Unknown]
  - Hypotension [Unknown]
